FAERS Safety Report 23246510 (Version 4)
Quarter: 2024Q1

REPORT INFORMATION
  Report Type: Spontaneous
  Country: US (occurrence: US)
  Receive Date: 20231130
  Receipt Date: 20240321
  Transmission Date: 20240409
  Serious: No
  Sender: FDA-Public Use
  Company Number: US-PFIZER INC-202300377027

PATIENT
  Age: 25 Year
  Sex: Male
  Weight: 58.97 kg

DRUGS (9)
  1. GENOTROPIN [Suspect]
     Active Substance: SOMATROPIN
     Indication: Hypothalamo-pituitary disorder
     Dosage: 1 MG, 1X/DAY
  2. TYROSINE [Concomitant]
     Active Substance: TYROSINE
     Indication: Hypothyroidism
     Dosage: 100 UG
  3. PROLIA [Concomitant]
     Active Substance: DENOSUMAB
     Indication: Osteopenia
     Dosage: UNK
  4. HORIZANT [Concomitant]
     Active Substance: GABAPENTIN ENACARBIL
     Indication: Neuralgia
     Dosage: 600 MG
  5. DEXAMETHASONE [Concomitant]
     Active Substance: DEXAMETHASONE
     Indication: Hypothalamo-pituitary disorder
     Dosage: 0.5 MG
  6. DEXILANT [Concomitant]
     Active Substance: DEXLANSOPRAZOLE
     Indication: Reflux gastritis
     Dosage: 60 MG
  7. CROMOLYN SODIUM [Concomitant]
     Active Substance: CROMOLYN SODIUM
     Indication: Mast cell activation syndrome
     Dosage: 100 MG, 1X/DAY
  8. ROBAXIN [Concomitant]
     Active Substance: METHOCARBAMOL
     Indication: Muscle relaxant therapy
     Dosage: 250 MG
  9. CLONIDINE [Concomitant]
     Active Substance: CLONIDINE
     Indication: Blood testosterone decreased
     Dosage: 0.1 MG

REACTIONS (3)
  - Pain [Unknown]
  - Asthenia [Unknown]
  - Device issue [Unknown]
